FAERS Safety Report 8839584 (Version 1)
Quarter: 2012Q4

REPORT INFORMATION
  Report Type: Spontaneous
  Country: US (occurrence: None)
  Receive Date: 20121012
  Receipt Date: 20121012
  Transmission Date: 20130627
  Serious: No
  Sender: FDA-Public Use
  Company Number: None

PATIENT
  Age: 82 Year
  Sex: Male
  Weight: 102.3 kg

DRUGS (1)
  1. MORPHINE [Suspect]
     Indication: PAIN
     Route: 048
     Dates: start: 20120326, end: 20120406

REACTIONS (6)
  - Hallucination [None]
  - Delusion [None]
  - Somnolence [None]
  - Mental status changes [None]
  - Bedridden [None]
  - Speech disorder [None]
